FAERS Safety Report 7428569-3 (Version None)
Quarter: 2011Q2

REPORT INFORMATION
  Report Type: 
  Country: None (occurrence: None)
  Receive Date: 20110421
  Receipt Date: 20090227
  Transmission Date: 20111010
  Serious: Yes (Death, Hospitalization, Other)
  Sender: FDA-Public Use
  Company Number: US-BAYER-200914348NA

PATIENT
  Age: 57 Year
  Sex: Male
  Weight: 124.26 kg

DRUGS (13)
  1. HEPARIN [Concomitant]
     Dosage: 329000 U, UNK
     Route: 042
     Dates: start: 20070202, end: 20070202
  2. LASIX [Concomitant]
     Dosage: 40 MG, UNK
     Route: 042
     Dates: start: 20070202, end: 20070202
  3. AMIODARONE [Concomitant]
     Dosage: 33CC/HOUR
     Route: 042
     Dates: start: 20070202, end: 20070202
  4. FRESH FROZEN PLASMA [Concomitant]
     Dosage: 2 U, UNK
     Route: 042
     Dates: start: 20070202, end: 20070202
  5. PLATELETS [Concomitant]
     Dosage: 10 PACK
     Route: 042
     Dates: start: 20070202, end: 20070202
  6. TRASYLOL [Suspect]
     Indication: CORONARY ARTERY BYPASS
     Dosage: 200 CC FOLLOWED BY 50 CC/ HOUR INFUSION; 200 CC PUMP PRIME
     Route: 042
     Dates: start: 20070202, end: 20070202
  7. ALLOPURINOL [Concomitant]
     Indication: GOUT
     Dosage: 300 MG, QD
     Route: 048
     Dates: start: 20061103
  8. PREDNISONE [Concomitant]
     Dosage: 20 MG, UNK
     Route: 048
     Dates: start: 20070110
  9. TRASYLOL [Suspect]
     Indication: AORTIC VALVE REPLACEMENT
  10. ASPIRIN [Concomitant]
     Dosage: 325 MG, QD
     Route: 048
  11. LISINOPRIL [Concomitant]
     Indication: HYPERTENSION
     Dosage: 20 MG, QD
     Route: 048
     Dates: start: 20061106
  12. PACKED RED BLOOD CELLS [Concomitant]
     Dosage: 4 U, UNK
     Route: 042
     Dates: start: 20070202, end: 20070202
  13. PROTAMINE SULFATE [Concomitant]
     Dosage: 1520MG
     Route: 042
     Dates: start: 20070202, end: 20070202

REACTIONS (13)
  - PAIN [None]
  - RENAL INJURY [None]
  - STRESS [None]
  - DEATH [None]
  - RENAL FAILURE [None]
  - ANHEDONIA [None]
  - RENAL IMPAIRMENT [None]
  - UNEVALUABLE EVENT [None]
  - INJURY [None]
  - EMOTIONAL DISTRESS [None]
  - ANXIETY [None]
  - FEAR [None]
  - MULTI-ORGAN FAILURE [None]
